FAERS Safety Report 7875618-4 (Version None)
Quarter: 2011Q4

REPORT INFORMATION
  Report Type: 
  Country: None (occurrence: None)
  Receive Date: 20111031
  Receipt Date: 20111020
  Transmission Date: 20120403
  Serious: Yes (Death)
  Sender: FDA-Public Use
  Company Number: US-MYLANLABS-2011S1021926

PATIENT
  Sex: Female

DRUGS (1)
  1. FENTANYL-100 [Suspect]
     Indication: PAIN
     Dates: start: 20100312

REACTIONS (2)
  - TOXICITY TO VARIOUS AGENTS [None]
  - INCORRECT DOSE ADMINISTERED BY DEVICE [None]
